FAERS Safety Report 9429826 (Version 1)
Quarter: 2013Q3

REPORT INFORMATION
  Report Type: Report from Study
  Country: US (occurrence: US)
  Receive Date: 20130730
  Receipt Date: 20130730
  Transmission Date: 20140515
  Serious: No
  Sender: FDA-Public Use
  Company Number: US-ABBOTT-13P-163-1043976-00

PATIENT
  Age: 59 Year
  Sex: Male
  Weight: 77.18 kg

DRUGS (5)
  1. NIASPAN (COATED) [Suspect]
     Indication: TOTAL CHOLESTEROL/HDL RATIO ABNORMAL
     Dates: start: 20130129
  2. ANDROGENS [Concomitant]
     Indication: PRODUCT USED FOR UNKNOWN INDICATION
  3. MVI [Concomitant]
     Indication: PRODUCT USED FOR UNKNOWN INDICATION
  4. BABY ASA [Concomitant]
     Indication: PRODUCT USED FOR UNKNOWN INDICATION
  5. PRAVASTATIN [Concomitant]
     Indication: PRODUCT USED FOR UNKNOWN INDICATION

REACTIONS (2)
  - Skin burning sensation [Recovered/Resolved]
  - Pruritus [Recovered/Resolved]
